FAERS Safety Report 4455088-9 (Version None)
Quarter: 2004Q3

REPORT INFORMATION
  Report Type: 
  Country: None (occurrence: None)
  Receive Date: 20040917
  Receipt Date: 20040903
  Transmission Date: 20050211
  Serious: Yes (Hospitalization)
  Sender: FDA-Public Use
  Company Number: WAES 0409SWE00006

PATIENT
  Age: 63 Year
  Sex: Male

DRUGS (3)
  1. VIOXX [Suspect]
     Indication: NEOPLASM PROPHYLAXIS
     Dosage: 25 MG/DAILY., PO
     Route: 048
     Dates: start: 20040812, end: 20040902
  2. ALFUZOSIN HYDROCHLORIDE [Concomitant]
  3. ATENOLOL [Concomitant]

REACTIONS (1)
  - ATRIAL FIBRILLATION [None]
